FAERS Safety Report 5228455-3 (Version None)
Quarter: 2007Q1

REPORT INFORMATION
  Report Type: 
  Country: None (occurrence: None)
  Receive Date: 20070205
  Receipt Date: 20070125
  Transmission Date: 20070707
  Serious: Yes (Death)
  Sender: FDA-Public Use
  Company Number: AU-JNJFOC-20070106468

PATIENT
  Age: 5 Decade
  Sex: Female

DRUGS (1)
  1. REMICADE [Suspect]
     Indication: RHEUMATOID ARTHRITIS
     Dosage: DURATION OF THERAPY - APPROXIMATELY 2 YEARS
     Route: 042

REACTIONS (2)
  - BREAST CANCER [None]
  - METASTASES TO OESOPHAGUS [None]
